FAERS Safety Report 23191496 (Version 1)
Quarter: 2023Q4

REPORT INFORMATION
  Report Type: Spontaneous
  Country: US (occurrence: None)
  Receive Date: 20231115
  Receipt Date: 20231115
  Transmission Date: 20240110
  Serious: No
  Sender: FDA-Public Use
  Company Number: None

PATIENT
  Age: 34 Year
  Sex: Female

DRUGS (1)
  1. ANNOVERA [Suspect]
     Active Substance: ETHINYL ESTRADIOL\SEGESTERONE ACETATE
     Indication: Contraception
     Route: 067
     Dates: start: 20221222

REACTIONS (3)
  - Haemorrhage [None]
  - Intermenstrual bleeding [None]
  - Product use issue [None]

NARRATIVE: CASE EVENT DATE: 20231115
